FAERS Safety Report 6737693-X (Version None)
Quarter: 2010Q2

REPORT INFORMATION
  Report Type: 
  Country: None (occurrence: None)
  Receive Date: 20100524
  Receipt Date: 20100510
  Transmission Date: 20101027
  Serious: Yes (Other)
  Sender: FDA-Public Use
  Company Number: PHHY2010US27140

PATIENT
  Sex: Female
  Weight: 56.689 kg

DRUGS (6)
  1. EXTAVIA [Suspect]
     Indication: MULTIPLE SCLEROSIS
     Dosage: 0.25 MG, QOD
     Route: 058
     Dates: start: 20100119
  2. EXTAVIA [Suspect]
     Dosage: 0.25 MG, QOD
     Route: 058
     Dates: start: 20100201
  3. CEPHADIN [Concomitant]
     Dosage: 1 DF, QHS
     Route: 048
     Dates: start: 20100101
  4. BACLOFEN [Concomitant]
     Dosage: 10 MG, TID
     Route: 048
     Dates: start: 20100101
  5. VERAPAMIL [Concomitant]
     Dosage: 40 MG, QD
     Route: 048
     Dates: start: 20100101
  6. AMPYRA [Concomitant]
     Dosage: 10 MG, BID
     Route: 048

REACTIONS (7)
  - ANGER [None]
  - DEPRESSION [None]
  - DISTURBANCE IN ATTENTION [None]
  - FATIGUE [None]
  - FEELING ABNORMAL [None]
  - HOSTILITY [None]
  - RASH PUSTULAR [None]
